FAERS Safety Report 7225685-6 (Version None)
Quarter: 2011Q1

REPORT INFORMATION
  Report Type: 
  Country: None (occurrence: None)
  Receive Date: 20110113
  Receipt Date: 20110103
  Transmission Date: 20110831
  Serious: Yes (Life-Threatening, Other)
  Sender: FDA-Public Use
  Company Number: FR-BRISTOL-MYERS SQUIBB COMPANY-15480171

PATIENT
  Age: 74 Year
  Sex: Male

DRUGS (6)
  1. ACTOS [Concomitant]
     Indication: TYPE 2 DIABETES MELLITUS
     Dates: end: 20101122
  2. TAHOR [Concomitant]
     Indication: DYSLIPIDAEMIA
     Dosage: TAHOR 10MG TABS
     Route: 048
     Dates: end: 20101122
  3. IRBESARTAN AND HYDROCHLOROTHIAZIDE [Concomitant]
     Indication: HYPERTENSION
     Route: 048
     Dates: start: 20101122
  4. STILNOX [Concomitant]
     Route: 048
     Dates: end: 20101122
  5. ASPIRIN [Concomitant]
     Indication: ARTERIAL DISORDER
     Dosage: POWDER FOR ORAL SOLUTION, 75 MG
     Route: 048
     Dates: end: 20101122
  6. GLUCOPHAGE [Suspect]
     Indication: TYPE 2 DIABETES MELLITUS
     Route: 048
     Dates: end: 20101122

REACTIONS (3)
  - SEPSIS [None]
  - LACTIC ACIDOSIS [None]
  - RENAL FAILURE [None]
